FAERS Safety Report 9103399 (Version 1)
Quarter: 2013Q1

REPORT INFORMATION
  Report Type: Spontaneous
  Country: US (occurrence: US)
  Receive Date: 20130219
  Receipt Date: 20130219
  Transmission Date: 20140127
  Serious: Yes (Hospitalization)
  Sender: FDA-Public Use
  Company Number: US-GLAXOSMITHKLINE-A0790989A

PATIENT
  Age: 41 Year
  Sex: Male

DRUGS (1)
  1. AVANDIA [Suspect]
     Indication: TYPE 2 DIABETES MELLITUS
     Dosage: 4MG PER DAY
     Route: 048
     Dates: start: 199904, end: 200705

REACTIONS (1)
  - Cardiac disorder [Not Recovered/Not Resolved]
